FAERS Safety Report 14263655 (Version 7)
Quarter: 2024Q2

REPORT INFORMATION
  Report Type: Spontaneous
  Country: IT (occurrence: IT)
  Receive Date: 20171208
  Receipt Date: 20240626
  Transmission Date: 20240715
  Serious: Yes (Life-Threatening, Hospitalization, Other)
  Sender: FDA-Public Use
  Company Number: IT-AUROBINDO-AUR-APL-2017-43245

PATIENT
  Age: 67 Year
  Sex: Male

DRUGS (15)
  1. CLOPIDOGREL [Suspect]
     Active Substance: CLOPIDOGREL BISULFATE
     Indication: Thrombosis in device
     Dosage: 75 MILLIGRAM, ONCE A DAY
     Route: 048
     Dates: start: 20141201, end: 20150401
  2. CLOPIDOGREL [Suspect]
     Active Substance: CLOPIDOGREL BISULFATE
     Indication: Anticoagulant therapy
     Dosage: 100 MG, UNK
     Route: 065
     Dates: start: 201412
  3. CLOPIDOGREL [Suspect]
     Active Substance: CLOPIDOGREL BISULFATE
     Indication: Arterial thrombosis
     Dosage: 75 MG, UNK
     Route: 065
     Dates: start: 201508
  4. CLOPIDOGREL [Suspect]
     Active Substance: CLOPIDOGREL BISULFATE
     Dosage: 75 MG, UNK
     Route: 065
     Dates: start: 201601
  5. ASPIRIN [Suspect]
     Active Substance: ASPIRIN
     Indication: Anticoagulant therapy
     Dosage: 300 MILLIGRAM
     Route: 065
  6. WARFARIN SODIUM [Suspect]
     Active Substance: WARFARIN SODIUM
     Indication: Anticoagulant therapy
     Dosage: UNK
     Route: 065
     Dates: start: 20140401
  7. TICAGRELOR [Suspect]
     Active Substance: TICAGRELOR
     Indication: Thrombosis in device
     Dosage: 180 MILLIGRAM, ONCE A DAY, 90 MG, TWO TIMES A DAY
     Route: 048
  8. TICAGRELOR [Suspect]
     Active Substance: TICAGRELOR
     Indication: Anticoagulant therapy
  9. TICAGRELOR [Suspect]
     Active Substance: TICAGRELOR
     Indication: Arterial thrombosis
  10. TICAGRELOR [Suspect]
     Active Substance: TICAGRELOR
     Indication: Arterial thrombosis
  11. ALTEPLASE [Concomitant]
     Active Substance: ALTEPLASE
     Indication: Fibrinolysis
     Dosage: UNK
     Route: 065
  12. ALTEPLASE [Concomitant]
     Active Substance: ALTEPLASE
     Indication: Product used for unknown indication
  13. ASPIRIN [Concomitant]
     Active Substance: ASPIRIN
     Indication: Product used for unknown indication
     Dosage: 100 MILLIGRAM
     Route: 065
  14. DIPYRIDAMOLE [Concomitant]
     Active Substance: DIPYRIDAMOLE
     Indication: Anticoagulant therapy
     Dosage: 800 MG, UNK
     Route: 065
  15. DIPYRIDAMOLE [Concomitant]
     Active Substance: DIPYRIDAMOLE
     Indication: Product used for unknown indication
     Dosage: UNK
     Route: 065

REACTIONS (8)
  - Embolic stroke [Unknown]
  - Haemorrhage intracranial [Unknown]
  - Cardiac ventricular thrombosis [Unknown]
  - Haematuria [Unknown]
  - Headache [Unknown]
  - Therapeutic response decreased [Unknown]
  - Product use in unapproved indication [Unknown]
  - Off label use [Unknown]
